FAERS Safety Report 6138938-X (Version None)
Quarter: 2009Q1

REPORT INFORMATION
  Report Type: 
  Country: None (occurrence: None)
  Receive Date: 20090331
  Receipt Date: 20090324
  Transmission Date: 20090719
  Serious: Yes (Other)
  Sender: FDA-Public Use
  Company Number: US-GENENTECH-277856

PATIENT
  Sex: Male
  Weight: 88.889 kg

DRUGS (1)
  1. XOLAIR [Suspect]
     Indication: ASTHMA
     Dosage: 375 MG, Q2W
     Route: 058
     Dates: start: 20080818, end: 20091209

REACTIONS (2)
  - GLOMERULONEPHRITIS [None]
  - NEPHRITIC SYNDROME [None]
